FAERS Safety Report 22354605 (Version 1)
Quarter: 2023Q2

REPORT INFORMATION
  Report Type: Spontaneous
  Country: US (occurrence: None)
  Receive Date: 20230522
  Receipt Date: 20230522
  Transmission Date: 20230721
  Serious: Yes (Other)
  Sender: FDA-Public Use
  Company Number: None

PATIENT
  Age: 42 Year
  Sex: Female
  Weight: 117 kg

DRUGS (2)
  1. BUPRENORPHINE TRANSDERMAL SYSTEM [Suspect]
     Active Substance: BUPRENORPHINE
     Indication: Bone pain
     Dosage: OTHER QUANTITY : 4 PATCH(ES);?OTHER FREQUENCY : EVERY 7 DAYS;?
     Route: 062
  2. BUPRENORPHINE TRANSDERMAL SYSTEM [Suspect]
     Active Substance: BUPRENORPHINE
     Indication: Mastocytic leukaemia

REACTIONS (4)
  - Product substitution issue [None]
  - Device adhesion issue [None]
  - Withdrawal syndrome [None]
  - Incorrect dose administered by device [None]

NARRATIVE: CASE EVENT DATE: 20230522
